FAERS Safety Report 9196276 (Version 1)
Quarter: 2013Q1

REPORT INFORMATION
  Report Type: Spontaneous
  Country: US (occurrence: None)
  Receive Date: 20120703
  Receipt Date: 20120703
  Transmission Date: 20140127
  Serious: No
  Sender: FDA-Public Use
  Company Number: PHEH2012US009034

PATIENT
  Sex: Female

DRUGS (8)
  1. GILENYA [Suspect]
     Route: 048
  2. LEVOTHYROXINE (LEVOTHYROXINE) TABLET [Concomitant]
  3. MULTIVITAMINS (ASCORBIC ACID) [Concomitant]
  4. ERRIN (NORETHISTERONE) TABLET [Concomitant]
  5. VITAMIN D (ERGOCALCIFEROL) [Concomitant]
  6. KELP (KELP, MACROCYSTIS PYRIFERA) TABLET [Concomitant]
  7. KRIL OIL (KRILL OIL) CAPSULE [Concomitant]
  8. MELATONIN (MELATONIN) CAPSULE [Concomitant]

REACTIONS (1)
  - Fatigue [None]
